FAERS Safety Report 21442538 (Version 1)
Quarter: 2022Q4

REPORT INFORMATION
  Report Type: Report from Study
  Country: CA (occurrence: CA)
  Receive Date: 20221011
  Receipt Date: 20221011
  Transmission Date: 20230113
  Serious: Yes (Other)
  Sender: FDA-Public Use
  Company Number: CA-JNJFOC-20211050858

PATIENT
  Sex: Male

DRUGS (1)
  1. IMBRUVICA [Suspect]
     Active Substance: IBRUTINIB
     Indication: Chronic lymphocytic leukaemia refractory
     Route: 048
     Dates: start: 20180621, end: 202111

REACTIONS (5)
  - Drug ineffective [Unknown]
  - Full blood count abnormal [Unknown]
  - Fatigue [Unknown]
  - Asthenia [Unknown]
  - Lymphadenopathy [Unknown]
